FAERS Safety Report 5051751-X (Version None)
Quarter: 2006Q3

REPORT INFORMATION
  Report Type: 
  Country: None (occurrence: None)
  Receive Date: 20060714
  Receipt Date: 20060703
  Transmission Date: 20061208
  Serious: Yes (Death)
  Sender: FDA-Public Use
  Company Number: ID-JNJFOC-20060603431

PATIENT
  Age: 54 Year
  Sex: Male
  Weight: 50 kg

DRUGS (7)
  1. NESIRITIDE [Suspect]
  2. NESIRITIDE [Suspect]
  3. NESIRITIDE [Suspect]
     Indication: CARDIAC FAILURE ACUTE
     Dosage: BOLUS
  4. DOBUTAMINE HCL [Concomitant]
  5. ASPILET [Concomitant]
  6. ISDN [Concomitant]
  7. DIGOXIN [Concomitant]

REACTIONS (3)
  - HYPOTENSION [None]
  - PNEUMONIA [None]
  - VENTRICULAR FIBRILLATION [None]
